FAERS Safety Report 17442179 (Version 7)
Quarter: 2020Q3

REPORT INFORMATION
  Report Type: Spontaneous
  Country: RO (occurrence: RO)
  Receive Date: 20200220
  Receipt Date: 20200807
  Transmission Date: 20201102
  Serious: Yes (Congenital Anomaly)
  Sender: FDA-Public Use
  Company Number: RO-B.I. PHARMACEUTICALS,INC./RIDGEFIELD-2020-BI-008725

PATIENT
  Sex: Male
  Weight: 3 kg

DRUGS (6)
  1. LAMIVUDINE AND ZIDOVUDINE [Suspect]
     Active Substance: LAMIVUDINE\ZIDOVUDINE
     Indication: HEPATITIS B
  2. LAMIVUDINE AND ZIDOVUDINE [Suspect]
     Active Substance: LAMIVUDINE\ZIDOVUDINE
     Indication: HIV INFECTION
     Route: 064
  3. VIRAMUNE [Suspect]
     Active Substance: NEVIRAPINE
     Indication: HIV INFECTION
     Route: 064
  4. COMBIVIR [Suspect]
     Active Substance: LAMIVUDINE\ZIDOVUDINE
     Indication: HEPATITIS B
  5. VIRAMUNE [Suspect]
     Active Substance: NEVIRAPINE
     Indication: HEPATITIS B
  6. COMBIVIR [Suspect]
     Active Substance: LAMIVUDINE\ZIDOVUDINE
     Indication: HIV INFECTION
     Route: 064

REACTIONS (11)
  - Speech disorder developmental [Unknown]
  - Attention deficit hyperactivity disorder [Unknown]
  - Cerebellar hypoplasia [Unknown]
  - Foetal exposure during pregnancy [Unknown]
  - Dandy-Walker syndrome [Unknown]
  - Congenital central nervous system anomaly [Unknown]
  - Ataxia [Unknown]
  - Macrocephaly [Unknown]
  - Ventricular enlargement [Unknown]
  - Cyst [Unknown]
  - Neurodevelopmental disorder [Unknown]
